FAERS Safety Report 5521156-3 (Version None)
Quarter: 2007Q4

REPORT INFORMATION
  Report Type: 
  Country: None (occurrence: None)
  Receive Date: 20071119
  Receipt Date: 20071108
  Transmission Date: 20080405
  Serious: Yes (Disabling)
  Sender: FDA-Public Use
  Company Number: NZ-ASTRAZENECA-2007AP07127

PATIENT
  Age: 782 Month
  Sex: Male
  Weight: 94.7 kg

DRUGS (3)
  1. ZOLADEX [Suspect]
     Indication: PROSTATE CANCER
     Route: 058
     Dates: start: 20070313
  2. ZOLADEX [Suspect]
     Route: 058
     Dates: start: 20070410
  3. DICLOFENAC SODIUM [Concomitant]
     Indication: GOUT
     Route: 048

REACTIONS (5)
  - AFFECT LABILITY [None]
  - AGGRESSION [None]
  - DELUSION [None]
  - HALLUCINATIONS, MIXED [None]
  - PSYCHOTIC DISORDER [None]
